FAERS Safety Report 9166824 (Version 1)
Quarter: 2012Q4

REPORT INFORMATION
  Report Type: 
  Country: US (occurrence: US)
  Receive Date: 20121102
  Receipt Date: 20121102
  Transmission Date: 20130627
  Serious: Yes (Other)
  Sender: FDA-Public Use
  Company Number: US-RB-046246-12

PATIENT
  Age: 23 Year
  Sex: Male

DRUGS (1)
  1. SUBOXONE FILM [Suspect]
     Indication: DRUG DEPENDENCE
     Dosage: Suboxone film;
     Route: 060
     Dates: start: 201203

REACTIONS (2)
  - Panic attack [Not Recovered/Not Resolved]
  - Suicidal ideation [Recovered/Resolved]
